FAERS Safety Report 19824349 (Version 1)
Quarter: 2021Q3

REPORT INFORMATION
  Report Type: Spontaneous
  Country: US (occurrence: US)
  Receive Date: 20210913
  Receipt Date: 20210913
  Transmission Date: 20211014
  Serious: No
  Sender: FDA-Public Use
  Company Number: US-KALA PHARAMACEUTICALS-2021KLA00072

PATIENT
  Age: 27 Year
  Sex: Female

DRUGS (11)
  1. EYSUVIS [Suspect]
     Active Substance: LOTEPREDNOL ETABONATE
     Indication: KERATOMILEUSIS
     Dosage: ONE SET OF DROPS
     Route: 047
     Dates: start: 20210716, end: 20210716
  2. PREDNISOLONE/MOXIFLOXACIN [Suspect]
     Active Substance: MOXIFLOXACIN\PREDNISOLONE
     Indication: KERATOMILEUSIS
     Dosage: UNK, 4X/DAY
     Route: 047
  3. ESZOPICLONE. [Concomitant]
     Active Substance: ESZOPICLONE
  4. INVELTYS [Suspect]
     Active Substance: LOTEPREDNOL ETABONATE
     Indication: KERATOMILEUSIS
     Dosage: 1 DROP, 4X/DAY (4 DROPS A DAY) IN EACH EYE, ALTERNATING WITH PREDNISOLONE/MOXIFLOXACIN
     Route: 047
     Dates: start: 20210713, end: 202107
  5. PREDNISOLONE/MOXIFLOXACIN [Suspect]
     Active Substance: MOXIFLOXACIN\PREDNISOLONE
     Indication: PHOTOPHOBIA
  6. INVELTYS [Suspect]
     Active Substance: LOTEPREDNOL ETABONATE
     Indication: PHOTOPHOBIA
  7. EYSUVIS [Suspect]
     Active Substance: LOTEPREDNOL ETABONATE
     Indication: POSTOPERATIVE CARE
  8. PREDNISOLONE/MOXIFLOXACIN [Suspect]
     Active Substance: MOXIFLOXACIN\PREDNISOLONE
     Indication: POSTOPERATIVE CARE
  9. EYSUVIS [Suspect]
     Active Substance: LOTEPREDNOL ETABONATE
     Indication: PHOTOPHOBIA
  10. INVELTYS [Suspect]
     Active Substance: LOTEPREDNOL ETABONATE
     Indication: POSTOPERATIVE CARE
     Dosage: UNK, ^TAPERED TO EYSUVIS^
     Route: 047
     Dates: start: 202107, end: 20210715
  11. VILAZODONE [Concomitant]
     Active Substance: VILAZODONE

REACTIONS (4)
  - Eye pain [Unknown]
  - Ocular discomfort [Unknown]
  - Vision blurred [Unknown]
  - Off label use [Recovered/Resolved]

NARRATIVE: CASE EVENT DATE: 20210713
